FAERS Safety Report 21439737 (Version 1)
Quarter: 2022Q4

REPORT INFORMATION
  Report Type: Spontaneous
  Country: FR (occurrence: FR)
  Receive Date: 20221011
  Receipt Date: 20221011
  Transmission Date: 20230113
  Serious: Yes (Other)
  Sender: FDA-Public Use
  Company Number: FR-NOVARTISPH-NVSC2022FR227705

PATIENT
  Sex: Female

DRUGS (1)
  1. BISOPROLOL [Suspect]
     Active Substance: BISOPROLOL
     Indication: Product used for unknown indication
     Dosage: QD, DAILY
     Route: 065

REACTIONS (5)
  - Cardiac failure [Unknown]
  - Dyspnoea [Unknown]
  - Oedema [Unknown]
  - Weight increased [Unknown]
  - Fatigue [Unknown]
